FAERS Safety Report 6752620-7 (Version None)
Quarter: 2010Q2

REPORT INFORMATION
  Report Type: 
  Country: None (occurrence: None)
  Receive Date: 20100601
  Receipt Date: 20100601
  Transmission Date: 20101027
  Serious: Yes (Hospitalization)
  Sender: FDA-Public Use
  Company Number: None

PATIENT
  Sex: Male
  Weight: 74 kg

DRUGS (12)
  1. VANCOMYCIN [Suspect]
     Indication: PNEUMONIA
     Dosage: 1000 MG EVERY 12 HOURS IV
     Route: 042
     Dates: start: 20100518, end: 20100522
  2. ALBUTEROL [Concomitant]
  3. ACETAMINOPHEN [Concomitant]
  4. DICYCLOMINE [Concomitant]
  5. ENOXAPARIN SODIUM [Concomitant]
  6. ENOXAPARIN SODIUM [Concomitant]
  7. FENTANYL [Concomitant]
  8. FUROSEMIDE [Concomitant]
  9. IPRATROPIUM [Concomitant]
  10. KETOROLAC TROMETHAMINE [Concomitant]
  11. PANTOPRAZOLE [Concomitant]
  12. PIPERACILLIN AND TAZOBACTAM [Concomitant]

REACTIONS (3)
  - BLOOD CREATININE INCREASED [None]
  - HAEMODIALYSIS [None]
  - LABORATORY TEST ABNORMAL [None]
